FAERS Safety Report 9380781 (Version 2)
Quarter: 2013Q3

REPORT INFORMATION
  Report Type: Spontaneous
  Country: US (occurrence: US)
  Receive Date: 20130702
  Receipt Date: 20130712
  Transmission Date: 20140515
  Serious: Yes (Death)
  Sender: FDA-Public Use
  Company Number: US-GILEAD-2013-0076220

PATIENT
  Age: 57 Year
  Sex: Male

DRUGS (1)
  1. LETAIRIS [Suspect]
     Indication: PORTOPULMONARY HYPERTENSION
     Dosage: 5 MG, UNK
     Dates: start: 201302

REACTIONS (2)
  - Death [Fatal]
  - Bedridden [Unknown]
